FAERS Safety Report 19691904 (Version 1)
Quarter: 2021Q3

REPORT INFORMATION
  Report Type: Spontaneous
  Country: RU (occurrence: RU)
  Receive Date: 20210812
  Receipt Date: 20210812
  Transmission Date: 20211014
  Serious: Yes (Other)
  Sender: FDA-Public Use
  Company Number: RU-AMGEN-RUSSP2021119940

PATIENT
  Age: 6 Year
  Sex: Male

DRUGS (6)
  1. METHYLPREDNISOLONE. [Concomitant]
     Active Substance: METHYLPREDNISOLONE
  2. SIROLIMUS. [Concomitant]
     Active Substance: SIROLIMUS
  3. FILGRASTIM [Suspect]
     Active Substance: FILGRASTIM
     Indication: OFF LABEL USE
  4. FILGRASTIM [Suspect]
     Active Substance: FILGRASTIM
     Indication: NEUTROPENIA
     Dosage: UNK
     Route: 065
  5. ROMIPLOSTIM [Suspect]
     Active Substance: ROMIPLOSTIM
     Indication: PANCYTOPENIA
     Dosage: UNK
     Route: 065
  6. ROMIPLOSTIM [Suspect]
     Active Substance: ROMIPLOSTIM
     Indication: OFF LABEL USE

REACTIONS (5)
  - Acute graft versus host disease in intestine [Recovered/Resolved]
  - Drug ineffective for unapproved indication [Unknown]
  - Off label use [Unknown]
  - Acute graft versus host disease in skin [Recovered/Resolved]
  - Systemic inflammatory response syndrome [Recovered/Resolved]
